FAERS Safety Report 5874126-X (Version None)
Quarter: 2008Q3

REPORT INFORMATION
  Report Type: 
  Country: None (occurrence: None)
  Receive Date: 20080905
  Receipt Date: 20080905
  Transmission Date: 20090109
  Serious: Yes (Life-Threatening, Hospitalization, Other)
  Sender: FDA-Public Use
  Company Number: None

PATIENT
  Age: 40 Year
  Sex: Female
  Weight: 56.246 kg

DRUGS (2)
  1. PEGINTERFERON ALFA-2A PEGASYS 180MCG/.5 ML KIT ROCHE [Suspect]
     Indication: HEPATITIS C
     Dosage: 180 ONCE WEEK SQ
     Route: 058
     Dates: start: 20071207, end: 20080405
  2. RIBAVIRIN [Suspect]
     Indication: HEPATITIS C
     Dosage: 200MG  2 TWICE A DAY PO
     Route: 048
     Dates: start: 20071207, end: 20080405

REACTIONS (11)
  - ABDOMINAL PAIN [None]
  - ALOPECIA [None]
  - BASEDOW'S DISEASE [None]
  - CONTUSION [None]
  - ESCHERICHIA INFECTION [None]
  - KIDNEY INFECTION [None]
  - MALAISE [None]
  - OCULAR ICTERUS [None]
  - UTERINE LEIOMYOMA [None]
  - WEIGHT DECREASED [None]
  - YELLOW SKIN [None]
